FAERS Safety Report 8165794-0 (Version None)
Quarter: 2012Q1

REPORT INFORMATION
  Report Type: 
  Country: None (occurrence: None)
  Receive Date: 20120227
  Receipt Date: 20110215
  Transmission Date: 20120608
  Serious: No
  Sender: FDA-Public Use
  Company Number: US-MYLANLABS-2011S1003237

PATIENT
  Age: 14 Year
  Sex: Female

DRUGS (3)
  1. AMNESTEEM [Suspect]
     Indication: ACNE
     Route: 048
     Dates: start: 20101018, end: 20110117
  2. AMNESTEEM [Suspect]
     Route: 048
     Dates: start: 20101018, end: 20110117
  3. AMNESTEEM [Suspect]
     Route: 048
     Dates: start: 20101018, end: 20110117

REACTIONS (2)
  - DIARRHOEA [None]
  - BACK PAIN [None]
